FAERS Safety Report 7610235-2 (Version None)
Quarter: 2011Q3

REPORT INFORMATION
  Report Type: 
  Country: None (occurrence: None)
  Receive Date: 20110713
  Receipt Date: 20110713
  Transmission Date: 20111222
  Serious: Yes (Other)
  Sender: FDA-Public Use
  Company Number: None

PATIENT
  Sex: Female
  Weight: 54.4316 kg

DRUGS (3)
  1. CLEOCIN [Suspect]
     Indication: EAR INFECTION
     Dosage: 300MG 3X/DAY ORAL
     Route: 048
     Dates: start: 20110203, end: 20110217
  2. CLEOCIN [Suspect]
     Indication: PHARYNGITIS STREPTOCOCCAL
     Dosage: 300MG 3X/DAY ORAL
     Route: 048
     Dates: start: 20110203, end: 20110217
  3. CLEOCIN [Suspect]
     Indication: DISEASE RECURRENCE
     Dosage: 300MG 3X/DAY ORAL
     Route: 048
     Dates: start: 20110203, end: 20110217

REACTIONS (2)
  - WEIGHT DECREASED [None]
  - COLITIS [None]
